FAERS Safety Report 6936983-5 (Version None)
Quarter: 2010Q3

REPORT INFORMATION
  Report Type: 
  Country: None (occurrence: None)
  Receive Date: 20100817
  Receipt Date: 20100805
  Transmission Date: 20110219
  Serious: Yes (Life-Threatening, Hospitalization)
  Sender: FDA-Public Use
  Company Number: 2010MA001453

PATIENT
  Age: 20 Year
  Sex: Male

DRUGS (1)
  1. FEVERALL [Suspect]
     Indication: NASOPHARYNGITIS
     Dosage: 1000 MG; 1X; PO
     Route: 048

REACTIONS (3)
  - BLOOD ELECTROLYTES ABNORMAL [None]
  - NEUTROPENIA [None]
  - TOXIC EPIDERMAL NECROLYSIS [None]
